FAERS Safety Report 24582679 (Version 4)
Quarter: 2024Q4

REPORT INFORMATION
  Report Type: Report from Study
  Country: BE (occurrence: BE)
  Receive Date: 20241106
  Receipt Date: 20241217
  Transmission Date: 20250115
  Serious: Yes (Hospitalization, Other)
  Sender: ABBVIE
  Company Number: BE-ABBVIE-5967430

PATIENT
  Age: 92 Year
  Sex: Male

DRUGS (6)
  1. FOSCARBIDOPA\FOSLEVODOPA [Suspect]
     Active Substance: FOSCARBIDOPA\FOSLEVODOPA
     Indication: Parkinson^s disease
     Dosage: LD: 1.20ML, BI RATE:0.37ML/H, HI RATE: 0.37ML/H, LI RATE: 0.28ML/H, ED: 0.20ML, DURING 24 HOURS
     Route: 058
     Dates: start: 20241014
  2. FOSCARBIDOPA\FOSLEVODOPA [Suspect]
     Active Substance: FOSCARBIDOPA\FOSLEVODOPA
     Dosage: LD: 1.20ML, BI RATE:0.37ML/H, ED: 0.20ML, DURING 24 HOURS
     Route: 058
     Dates: start: 20240719, end: 20241014
  3. STALEVO [Concomitant]
     Active Substance: CARBIDOPA\ENTACAPONE\LEVODOPA
     Indication: Parkinson^s disease
     Dosage: FREQUENCY TEXT: AT 8PM
  4. STALEVO [Concomitant]
     Active Substance: CARBIDOPA\ENTACAPONE\LEVODOPA
     Indication: Parkinson^s disease
     Dosage: FREQUENCY TEXT: AT 7:30AM, 11AM,4PM
  5. BENSERAZIDE\LEVODOPA [Concomitant]
     Active Substance: BENSERAZIDE\LEVODOPA
     Indication: Product used for unknown indication
     Dosage: FREQUENCY TEXT: AT 10PM
  6. DONEPEZIL [Concomitant]
     Active Substance: DONEPEZIL
     Indication: Memory impairment
     Route: 048
     Dates: start: 20210701

REACTIONS (6)
  - Hip surgery [Unknown]
  - Confusional state [Recovered/Resolved]
  - Balance disorder [Unknown]
  - Device use issue [Unknown]
  - On and off phenomenon [Unknown]
  - Rehabilitation therapy [Unknown]

NARRATIVE: CASE EVENT DATE: 20241001
